FAERS Safety Report 23938255 (Version 1)
Quarter: 2024Q2

REPORT INFORMATION
  Report Type: Spontaneous
  Country: ZA (occurrence: None)
  Receive Date: 20240604
  Receipt Date: 20240604
  Transmission Date: 20240716
  Serious: Yes (Death)
  Sender: FDA-Public Use
  Company Number: 2024A128035

PATIENT
  Age: 37 Year
  Sex: Male

DRUGS (6)
  1. DAPAGLIFLOZIN PROPANEDIOL [Suspect]
     Active Substance: DAPAGLIFLOZIN PROPANEDIOL
     Route: 048
  2. CLOBAZAM [Concomitant]
     Active Substance: CLOBAZAM
  3. TEGRETOL XR [Concomitant]
     Active Substance: CARBAMAZEPINE
  4. FUROSEMIDE [Concomitant]
     Active Substance: FUROSEMIDE
  5. CARVEDILOL [Concomitant]
     Active Substance: CARVEDILOL
  6. SPIRACTIN [Concomitant]

REACTIONS (1)
  - Death [Fatal]

NARRATIVE: CASE EVENT DATE: 20240525
